FAERS Safety Report 7545411-0 (Version None)
Quarter: 2011Q2

REPORT INFORMATION
  Report Type: 
  Country: None (occurrence: None)
  Receive Date: 20110524
  Receipt Date: 20110210
  Transmission Date: 20111010
  Serious: No
  Sender: FDA-Public Use
  Company Number: 027259

PATIENT
  Sex: Female

DRUGS (2)
  1. CIMZIA [Suspect]
     Dosage: (800 MG, 800MG INSTEAD OF 400MG SUBCUTANEOUS)
     Route: 058
  2. BENADRYL [Concomitant]

REACTIONS (2)
  - INFLUENZA [None]
  - INCORRECT DOSE ADMINISTERED [None]
